FAERS Safety Report 21926866 (Version 4)
Quarter: 2023Q2

REPORT INFORMATION
  Report Type: Spontaneous
  Country: US (occurrence: US)
  Receive Date: 20230130
  Receipt Date: 20230613
  Transmission Date: 20230722
  Serious: No
  Sender: FDA-Public Use
  Company Number: US-PFIZER INC-PV202300015415

PATIENT
  Age: 62 Year
  Sex: Female

DRUGS (2)
  1. IBRANCE [Suspect]
     Active Substance: PALBOCICLIB
     Dosage: UNK
  2. FEMARA [Suspect]
     Active Substance: LETROZOLE
     Dosage: UNK

REACTIONS (8)
  - Fatigue [Recovering/Resolving]
  - Weight increased [Unknown]
  - Emotional disorder [Unknown]
  - Mental disorder [Unknown]
  - Depression [Unknown]
  - Alopecia [Unknown]
  - Onychoclasis [Unknown]
  - Eye disorder [Unknown]
